FAERS Safety Report 8353950-8 (Version None)
Quarter: 2012Q2

REPORT INFORMATION
  Report Type: 
  Country: None (occurrence: None)
  Receive Date: 20120511
  Receipt Date: 20120503
  Transmission Date: 20120825
  Serious: Yes (Hospitalization)
  Sender: FDA-Public Use
  Company Number: US-ASTRAZENECA-2012SE28971

PATIENT
  Age: 56 Year
  Sex: Female

DRUGS (2)
  1. AMOXICILLIN [Suspect]
     Route: 065
  2. SYMBICORT [Suspect]
     Route: 055

REACTIONS (4)
  - ADVERSE EVENT [None]
  - PNEUMONIA PRIMARY ATYPICAL [None]
  - BLOOD DISORDER [None]
  - IRON METABOLISM DISORDER [None]
